FAERS Safety Report 15946066 (Version 1)
Quarter: 2019Q1

REPORT INFORMATION
  Report Type: Spontaneous
  Country: GB (occurrence: GB)
  Receive Date: 20190211
  Receipt Date: 20190211
  Transmission Date: 20190417
  Serious: Yes (Other)
  Sender: FDA-Public Use
  Company Number: GB-ROCHE-2262483

PATIENT
  Age: 72 Year
  Sex: Female

DRUGS (3)
  1. MYCOPHENOLATE MOFETIL. [Concomitant]
     Active Substance: MYCOPHENOLATE MOFETIL
     Route: 065
  2. PREDNISOLONE. [Concomitant]
     Active Substance: PREDNISOLONE
     Route: 065
  3. RANIBIZUMAB. [Suspect]
     Active Substance: RANIBIZUMAB
     Indication: NEOVASCULAR AGE-RELATED MACULAR DEGENERATION
     Route: 050

REACTIONS (8)
  - Normochromic anaemia [Unknown]
  - Skin tightness [Recovering/Resolving]
  - Thrombocytosis [Unknown]
  - Eosinophilic fasciitis [Recovering/Resolving]
  - Movement disorder [Unknown]
  - Mass [Unknown]
  - Eosinophilia [Unknown]
  - Peripheral swelling [Recovering/Resolving]
